FAERS Safety Report 7407619-4 (Version None)
Quarter: 2011Q2

REPORT INFORMATION
  Report Type: 
  Country: None (occurrence: None)
  Receive Date: 20110404
  Receipt Date: 20110318
  Transmission Date: 20111010
  Serious: No
  Sender: FDA-Public Use
  Company Number: 026092

PATIENT
  Sex: Female

DRUGS (5)
  1. LISINOPRIL [Concomitant]
  2. CIMZIA [Suspect]
     Indication: RHEUMATOID ARTHRITIS
     Dosage: 200 MG 1X/2 WEEKS SUBCUTANEOUS
     Route: 058
     Dates: start: 20100928, end: 20101214
  3. PREDNISOLONE [Concomitant]
  4. ARCOXIA [Concomitant]
  5. METEX [Concomitant]

REACTIONS (2)
  - DERMATITIS PSORIASIFORM [None]
  - RASH [None]
